FAERS Safety Report 15651964 (Version 2)
Quarter: 2018Q4

REPORT INFORMATION
  Report Type: Spontaneous
  Country: JP (occurrence: JP)
  Receive Date: 20181123
  Receipt Date: 20181129
  Transmission Date: 20190205
  Serious: Yes (Hospitalization)
  Sender: FDA-Public Use
  Company Number: JP-009507513-1811JPN002432J

PATIENT
  Age: 8 Decade
  Sex: Female

DRUGS (10)
  1. YOKU-KAN-SAN [Concomitant]
     Active Substance: HERBALS
     Dosage: 1 PACKAGE PER DAY
     Route: 065
     Dates: end: 201512
  2. REMINYL [Concomitant]
     Active Substance: GALANTAMINE
     Dosage: 2 TABIET PER DAY
     Route: 048
     Dates: start: 201601
  3. REMERON [Suspect]
     Active Substance: MIRTAZAPINE
     Dosage: 1 DOSAGE FORM
     Route: 048
     Dates: start: 201602
  4. SEDIEL [Concomitant]
     Active Substance: TANDOSPIRONE
     Dosage: 1 TABIET PER DAY
     Route: 048
     Dates: end: 201511
  5. REMINYL [Concomitant]
     Active Substance: GALANTAMINE
     Dosage: 2 TABIET PER DAY
     Route: 048
     Dates: start: 201602
  6. REMERON [Suspect]
     Active Substance: MIRTAZAPINE
     Dosage: 0.5 DOSAGE FORM
     Route: 048
     Dates: end: 201602
  7. SEDIEL [Concomitant]
     Active Substance: TANDOSPIRONE
     Dosage: 2 TABIET PER DAY
     Route: 048
     Dates: start: 201512
  8. SEDIEL [Concomitant]
     Active Substance: TANDOSPIRONE
     Dosage: 1 TABIET PER DAY
     Route: 048
     Dates: start: 201601
  9. REMINYL [Concomitant]
     Active Substance: GALANTAMINE
     Dosage: 2 TABIET PER DAY
     Route: 048
     Dates: start: 201512
  10. YOKU-KAN-SAN [Concomitant]
     Active Substance: HERBALS
     Dosage: 3 PACKAGE PER DAY
     Route: 065
     Dates: start: 201512

REACTIONS (4)
  - Regressive behaviour [Unknown]
  - Adverse event [Unknown]
  - Judgement impaired [Unknown]
  - Insomnia [Unknown]

NARRATIVE: CASE EVENT DATE: 201512
